FAERS Safety Report 8982877 (Version 2)
Quarter: 2013Q1

REPORT INFORMATION
  Report Type: Spontaneous
  Country: JP (occurrence: JP)
  Receive Date: 20121224
  Receipt Date: 20130102
  Transmission Date: 20140127
  Serious: Yes (Hospitalization)
  Sender: FDA-Public Use
  Company Number: JP-PFIZER INC-2012319291

PATIENT
  Age: 79 Year
  Sex: Male

DRUGS (1)
  1. CORTRIL [Suspect]
     Indication: STEROID THERAPY
     Dosage: 18 MG, 3 TIMES DAILY  (MORNING: 8 MG, NOON: 5 MG AND EVENING: 5 MG)
     Route: 048

REACTIONS (1)
  - Asthenia [Unknown]
